FAERS Safety Report 5957096-5 (Version None)
Quarter: 2008Q4

REPORT INFORMATION
  Report Type: 
  Country: None (occurrence: None)
  Receive Date: 20081118
  Receipt Date: 20081112
  Transmission Date: 20090506
  Serious: Yes (Other)
  Sender: FDA-Public Use
  Company Number: PHHY2008CA00573

PATIENT
  Sex: Male

DRUGS (3)
  1. SANDOSTATIN LAR [Suspect]
     Indication: CARCINOID SYNDROME
     Dosage: 30 MG, EVERY 4 WEEKS
     Route: 030
     Dates: start: 20070618
  2. INSULIN [Concomitant]
     Dosage: 34U AC BREAKFAST AND SUPPER
  3. INSULIN [Concomitant]
     Dosage: 10 U AC MEALS AND 40 U Q HS
     Route: 030
     Dates: start: 20080128

REACTIONS (6)
  - BLOOD GLUCOSE INCREASED [None]
  - BLOOD PRESSURE INCREASED [None]
  - COMPUTERISED TOMOGRAM ABNORMAL [None]
  - DIABETIC NEUROPATHY [None]
  - LOSS OF CONSCIOUSNESS [None]
  - PARAESTHESIA [None]
